FAERS Safety Report 5775358-1 (Version None)
Quarter: 2008Q2

REPORT INFORMATION
  Report Type: 
  Country: None (occurrence: None)
  Receive Date: 20080617
  Receipt Date: 20080605
  Transmission Date: 20081010
  Serious: Yes (Hospitalization)
  Sender: FDA-Public Use
  Company Number: JP-MERCK-0806USA02561

PATIENT
  Age: 77 Year
  Sex: Female

DRUGS (5)
  1. ZETIA [Suspect]
     Indication: HYPERCHOLESTEROLAEMIA
     Route: 048
     Dates: start: 20071005, end: 20071025
  2. ZETIA [Suspect]
     Route: 048
     Dates: start: 20071218, end: 20071227
  3. MELOXICAM [Concomitant]
     Route: 065
  4. PAROXETINE HYDROCHLORIDE [Concomitant]
     Route: 065
  5. ALPRAZOLAM [Concomitant]
     Route: 065

REACTIONS (2)
  - CHOLECYSTITIS ACUTE [None]
  - ILEUS PARALYTIC [None]
